FAERS Safety Report 7155089-6 (Version None)
Quarter: 2010Q4

REPORT INFORMATION
  Report Type: 
  Country: None (occurrence: None)
  Receive Date: 20101214
  Receipt Date: 20100304
  Transmission Date: 20110411
  Serious: Yes (Other)
  Sender: FDA-Public Use
  Company Number: US-AMGEN-QUU352709

PATIENT

DRUGS (11)
  1. ENBREL [Suspect]
     Indication: RHEUMATOID ARTHRITIS
     Dosage: 50 MG, QWK
     Route: 058
     Dates: start: 20031207, end: 20090316
  2. METHOTREXATE [Concomitant]
     Dosage: UNK UNK, UNK
     Dates: start: 20010605
  3. FOLIC ACID [Concomitant]
     Dosage: UNK UNK, UNK
     Dates: start: 20010605
  4. FOSINOPRIL SODIUM [Concomitant]
     Dosage: 40 MG, UNK
  5. PREDNISONE [Concomitant]
  6. LANSOPRAZOLE [Concomitant]
  7. ATORVASTATIN CALCIUM [Concomitant]
  8. FOLINIC ACID [Concomitant]
     Dosage: UNK UNK, UNK
     Dates: start: 20051219
  9. HYDROXYCHLOROQUINE [Concomitant]
  10. FENTANYL [Concomitant]
  11. LISINOPRIL [Concomitant]

REACTIONS (2)
  - BRONCHIOLOALVEOLAR CARCINOMA [None]
  - NON-SMALL CELL LUNG CANCER [None]
